FAERS Safety Report 4998468-5 (Version None)
Quarter: 2006Q2

REPORT INFORMATION
  Report Type: 
  Country: None (occurrence: None)
  Receive Date: 20060508
  Receipt Date: 20060424
  Transmission Date: 20061013
  Serious: Yes (Hospitalization, Other)
  Sender: FDA-Public Use
  Company Number: 2006056267

PATIENT
  Age: 29 Year
  Sex: Female
  Weight: 55 kg

DRUGS (1)
  1. AZULFIDINE [Suspect]
     Indication: ANKYLOSING SPONDYLITIS
     Dosage: 4000 MG (1000 MG 4 IN 1 D)
     Dates: start: 20051217, end: 20060210

REACTIONS (9)
  - ADVERSE DRUG REACTION [None]
  - EOSINOPHILIC PNEUMONIA [None]
  - HAEMOGLOBIN DECREASED [None]
  - INFECTIOUS MONONUCLEOSIS [None]
  - INFLAMMATION [None]
  - NIGHT SWEATS [None]
  - PLATELET COUNT DECREASED [None]
  - PLEURAL EFFUSION [None]
  - VIRAL INFECTION [None]
